FAERS Safety Report 9746351 (Version 1)
Quarter: 2013Q4

REPORT INFORMATION
  Report Type: Spontaneous
  Country: GB (occurrence: None)
  Receive Date: 20131205
  Receipt Date: 20131205
  Transmission Date: 20140711
  Serious: Yes (Life-Threatening)
  Sender: FDA-Public Use
  Company Number: GB-012918

PATIENT
  Age: 32 Year
  Sex: Female

DRUGS (2)
  1. PROPESS [Suspect]
     Indication: INDUCED LABOUR
     Route: 067
     Dates: start: 20130306, end: 20130607
  2. LEVOTHYROXINE [Concomitant]

REACTIONS (10)
  - Uterine hypertonus [None]
  - Postpartum haemorrhage [None]
  - Anaphylactoid syndrome of pregnancy [None]
  - Multi-organ failure [None]
  - Renal failure [None]
  - Dialysis [None]
  - Cardiac failure [None]
  - Encephalopathy [None]
  - Coagulopathy [None]
  - Urinary tract infection [None]
